FAERS Safety Report 5316424-4 (Version None)
Quarter: 2007Q2

REPORT INFORMATION
  Report Type: 
  Country: None (occurrence: None)
  Receive Date: 20070504
  Receipt Date: 20070423
  Transmission Date: 20071010
  Serious: Yes (Other)
  Sender: FDA-Public Use
  Company Number: PHRM2007FR01337

PATIENT
  Age: 9 Year
  Sex: Male

DRUGS (4)
  1. RITALIN [Suspect]
     Indication: PSYCHOMOTOR HYPERACTIVITY
     Dosage: 10 MG/DAY
     Route: 048
     Dates: start: 20050101
  2. RITALIN [Suspect]
     Dosage: 20 MG/DAY
     Route: 048
  3. RITALIN [Suspect]
     Dosage: 10 MG/DAY
     Route: 048
     Dates: end: 20070101
  4. CONCERTA [Suspect]
     Indication: PSYCHOMOTOR HYPERACTIVITY
     Dosage: 30 MG/DAY
     Route: 048
     Dates: end: 20070101

REACTIONS (25)
  - ABNORMAL BEHAVIOUR [None]
  - AGGRESSION [None]
  - AGITATION [None]
  - ANXIETY [None]
  - APATHY [None]
  - ASTHENIA [None]
  - BLOOD MAGNESIUM DECREASED [None]
  - CHEST PAIN [None]
  - DECREASED APPETITE [None]
  - DEPRESSED MOOD [None]
  - DEPRESSION [None]
  - DRUG DEPENDENCE [None]
  - EMOTIONAL DISORDER [None]
  - FATIGUE [None]
  - GROWTH RETARDATION [None]
  - HEADACHE [None]
  - IMPULSIVE BEHAVIOUR [None]
  - INITIAL INSOMNIA [None]
  - MUSCLE SPASMS [None]
  - PALLOR [None]
  - STARING [None]
  - SUICIDAL IDEATION [None]
  - TEARFULNESS [None]
  - THERAPEUTIC PROCEDURE [None]
  - UNDERWEIGHT [None]
